FAERS Safety Report 7271841-0 (Version None)
Quarter: 2011Q1

REPORT INFORMATION
  Report Type: 
  Country: None (occurrence: None)
  Receive Date: 20110203
  Receipt Date: 20110125
  Transmission Date: 20110831
  Serious: Yes (Death, Life-Threatening, Other)
  Sender: FDA-Public Use
  Company Number: FR-BAXTER-2011BH002216

PATIENT
  Age: 81 Year
  Sex: Female

DRUGS (15)
  1. SALINE [Concomitant]
     Dates: start: 20101118, end: 20101125
  2. TRIMETAZIDINE HYDROCHLORIDE [Concomitant]
  3. FOSAMAX [Concomitant]
  4. GAMMAGARD LIQUID [Suspect]
     Route: 042
     Dates: start: 20101118, end: 20101121
  5. CORTICOSTEROID NOS [Concomitant]
     Dates: start: 20100701
  6. DUPHALAC /NET/ [Concomitant]
  7. GAMMAGARD LIQUID [Suspect]
     Indication: OFF LABEL USE
     Route: 042
     Dates: start: 20101118, end: 20101121
  8. SOLUPRED [Concomitant]
  9. MOPRAL [Concomitant]
  10. OSTRAM [Concomitant]
  11. GAMMAGARD LIQUID [Suspect]
     Route: 042
     Dates: start: 20101118, end: 20101121
  12. DIFFU K [Concomitant]
  13. GAMMAGARD LIQUID [Suspect]
     Indication: DERMATOMYOSITIS
     Route: 042
     Dates: start: 20101118, end: 20101121
  14. ESCITALOPRAM [Concomitant]
  15. LEXOMIL [Concomitant]

REACTIONS (3)
  - CARDIAC ARREST [None]
  - CARDIOGENIC SHOCK [None]
  - PULMONARY EMBOLISM [None]
